FAERS Safety Report 8612951-2 (Version None)
Quarter: 2012Q3

REPORT INFORMATION
  Report Type: 
  Country: None (occurrence: None)
  Receive Date: 20120822
  Receipt Date: 20120619
  Transmission Date: 20120928
  Serious: No
  Sender: FDA-Public Use
  Company Number: US-ALLERGAN-1208519US

PATIENT
  Age: 67 Year
  Sex: Female

DRUGS (16)
  1. SANCTURA XR [Suspect]
     Indication: CYSTITIS INTERSTITIAL
     Dosage: UNK
     Route: 048
     Dates: start: 20120619, end: 20120619
  2. NORGESIC BLUE [Concomitant]
     Indication: BLADDER PAIN
     Dosage: UNK
     Route: 048
  3. LIDODERM [Concomitant]
     Indication: LOCAL ANAESTHESIA
     Dosage: UNK
     Route: 061
  4. LORTAB [Concomitant]
     Indication: SYSTEMIC LUPUS ERYTHEMATOSUS
     Dosage: 5 MG, Q8HR
     Route: 048
  5. CYMBALTA [Concomitant]
     Indication: PAIN
  6. GAMMA GLOBULIN                     /00025201/ [Concomitant]
     Indication: IMMUNE SYSTEM DISORDER
     Dosage: 1 UNK, UNK
     Route: 042
  7. NEXIUM [Concomitant]
     Indication: HYPERCHLORHYDRIA
     Dosage: 40 MG, PRN
     Route: 048
  8. NORVASC [Concomitant]
     Indication: BLOOD PRESSURE
     Dosage: 5 MG, BID
     Route: 048
  9. PLAQUERIL [Concomitant]
     Indication: SYSTEMIC LUPUS ERYTHEMATOSUS
     Dosage: 200 MG, BID
     Route: 048
  10. PREDNESONE DOSE PACK [Concomitant]
     Indication: DYSPNOEA
     Dosage: UNK
     Route: 048
     Dates: start: 20120617
  11. GENTEL EYE DROPS [Concomitant]
     Indication: DRY EYE
     Dosage: UNK
     Route: 047
  12. CITALOPRAM HYDROBROMIDE [Concomitant]
     Indication: NERVOUSNESS
     Dosage: UNK
     Route: 048
  13. SANCTURA XR [Suspect]
     Indication: MUSCLE SPASMS
  14. AMBIEN [Concomitant]
     Indication: INSOMNIA
     Dosage: 5 MG, QHS
     Route: 048
  15. BISACODYL [Concomitant]
     Indication: CONSTIPATION
     Dosage: UNK
     Route: 048
  16. CYMBALTA [Concomitant]
     Indication: DEPRESSION
     Dosage: 60 MG, QAM
     Route: 048

REACTIONS (3)
  - DRY MOUTH [None]
  - URINARY RETENTION [None]
  - COUGH [None]
